FAERS Safety Report 17214623 (Version 1)
Quarter: 2020Q1

REPORT INFORMATION
  Report Type: Spontaneous
  Country: PL (occurrence: PL)
  Receive Date: 20191228
  Receipt Date: 20191228
  Transmission Date: 20200409
  Serious: Yes (Life-Threatening, Hospitalization)
  Sender: FDA-Public Use
  Company Number: None

PATIENT
  Age: 64 Year
  Sex: Male
  Weight: 80 kg

DRUGS (8)
  1. AZITHROMYCIN ANHYDROUS. [Suspect]
     Active Substance: AZITHROMYCIN ANHYDROUS
     Indication: UPPER RESPIRATORY TRACT INFECTION
     Route: 048
     Dates: start: 20191212, end: 20191215
  2. MAGNESSIUM CA. 350 MG/D [Concomitant]
  3. LOVAZA 1G 1-0-1 [Concomitant]
  4. HYDROCODONE ACETAMIN 10-325MG 1/2-0-1/2 [Concomitant]
  5. TAURIN 1-1-1 [Concomitant]
  6. CO Q10 200MG 1-0-1 [Concomitant]
  7. VIT. B COMPLEX [Concomitant]
  8. ZOLPIDEM 10MG 0-0-1 [Concomitant]

REACTIONS (1)
  - Cardiac arrest [None]

NARRATIVE: CASE EVENT DATE: 20191214
